FAERS Safety Report 6298040-3 (Version None)
Quarter: 2009Q3

REPORT INFORMATION
  Report Type: 
  Country: None (occurrence: None)
  Receive Date: 20090805
  Receipt Date: 20090728
  Transmission Date: 20100115
  Serious: Yes (Death)
  Sender: FDA-Public Use
  Company Number: US-GILEAD-2009-0023350

PATIENT
  Sex: Female
  Weight: 61.29 kg

DRUGS (13)
  1. LETAIRIS [Suspect]
     Indication: PULMONARY ARTERIAL HYPERTENSION
     Dates: start: 20090201
  2. NEXIUM [Concomitant]
  3. OXYGEN [Concomitant]
  4. ADVIL [Concomitant]
  5. MULTI-VITAMIN [Concomitant]
  6. CUPRIMINE [Concomitant]
  7. PREDNISONE TAB [Concomitant]
  8. NORVASC [Concomitant]
  9. REVATIO [Concomitant]
  10. LOTENSIN [Concomitant]
  11. K-DUR [Concomitant]
  12. HYDROCHLOROTHIAZIDE [Concomitant]
  13. VICODIN [Concomitant]

REACTIONS (1)
  - DEATH [None]
